FAERS Safety Report 6949767-9 (Version None)
Quarter: 2010Q3

REPORT INFORMATION
  Report Type: 
  Country: None (occurrence: None)
  Receive Date: 20100828
  Receipt Date: 20100114
  Transmission Date: 20110219
  Serious: No
  Sender: FDA-Public Use
  Company Number: US-ABBOTT-10P-163-0619300-00

PATIENT
  Age: 52 Year
  Sex: Male

DRUGS (1)
  1. NIASPAN [Suspect]
     Indication: BLOOD CHOLESTEROL INCREASED
     Dates: start: 20090101

REACTIONS (3)
  - BURNING SENSATION [None]
  - ERYTHEMA [None]
  - FLUSHING [None]
